FAERS Safety Report 6071049-0 (Version None)
Quarter: 2009Q1

REPORT INFORMATION
  Report Type: 
  Country: None (occurrence: None)
  Receive Date: 20090209
  Receipt Date: 20080617
  Transmission Date: 20090719
  Serious: Yes (Other)
  Sender: FDA-Public Use
  Company Number: A0733432A

PATIENT
  Age: 19 Year
  Sex: Male

DRUGS (2)
  1. PAXIL CR [Suspect]
     Dosage: 50MG PER DAY
     Route: 048
     Dates: start: 20000101
  2. NO CONCURRENT MEDICATION [Concomitant]

REACTIONS (4)
  - CONVULSION [None]
  - LOSS OF CONSCIOUSNESS [None]
  - OVERDOSE [None]
  - VISUAL IMPAIRMENT [None]
